FAERS Safety Report 5386474-0 (Version None)
Quarter: 2007Q3

REPORT INFORMATION
  Report Type: 
  Country: None (occurrence: None)
  Receive Date: 20070710
  Receipt Date: 20070702
  Transmission Date: 20080115
  Serious: Yes (Other)
  Sender: FDA-Public Use
  Company Number: 163-21880-07040818

PATIENT
  Age: 59 Year
  Sex: Male
  Weight: 78.9259 kg

DRUGS (2)
  1. REVLIMID [Suspect]
     Indication: MULTIPLE MYELOMA
     Dosage: 25 MG, DAILY ON DAYS 1-21, ORAL
     Route: 048
     Dates: start: 20060327
  2. DEXAMETHASONE TAB [Concomitant]

REACTIONS (4)
  - ANOGENITAL WARTS [None]
  - DISEASE PROGRESSION [None]
  - HAEMATOCRIT DECREASED [None]
  - INFECTION [None]
